FAERS Safety Report 23187317 (Version 1)
Quarter: 2023Q4

REPORT INFORMATION
  Report Type: Spontaneous
  Country: FR (occurrence: FR)
  Receive Date: 20231115
  Receipt Date: 20231115
  Transmission Date: 20240110
  Serious: Yes (Hospitalization)
  Sender: FDA-Public Use
  Company Number: FR-AMERICAN REGENT INC-2023002628

PATIENT
  Age: 68 Year
  Sex: Male

DRUGS (5)
  1. VENOFER [Suspect]
     Active Substance: IRON SUCROSE
     Indication: Anaemia
     Dosage: UNK, SINGLE
     Route: 042
     Dates: start: 20230124, end: 20230124
  2. VENOFER [Suspect]
     Active Substance: IRON SUCROSE
     Dosage: UNK, SINGLE (DATE OF LAST ADMINISTRATION: 26-JAN-2023)
     Route: 042
     Dates: start: 20230126, end: 20230126
  3. AMIKACIN [Suspect]
     Active Substance: AMIKACIN
     Indication: Bacteraemia
     Dosage: UNK (DATE OF LAST ADMINISTRATION: 26-JAN-2023)
     Route: 042
     Dates: start: 20230126, end: 2023
  4. CEFAZOLIN [Suspect]
     Active Substance: CEFAZOLIN
     Indication: Bacteraemia
     Dosage: UNK
     Route: 042
     Dates: start: 20230126, end: 20230131
  5. AUGMENTIN [Suspect]
     Active Substance: AMOXICILLIN\CLAVULANATE POTASSIUM
     Indication: Bacteraemia
     Dosage: UNK (DATE OF LAST ADMINISTRATION: 26-JAN-2023)
     Route: 042
     Dates: start: 20230124, end: 2023

REACTIONS (1)
  - Eosinophilia [Recovered/Resolved]

NARRATIVE: CASE EVENT DATE: 20230131
